FAERS Safety Report 17132665 (Version 1)
Quarter: 2019Q4

REPORT INFORMATION
  Report Type: Spontaneous
  Country: PT (occurrence: PT)
  Receive Date: 20191210
  Receipt Date: 20191210
  Transmission Date: 20200122
  Serious: Yes (Other)
  Sender: FDA-Public Use
  Company Number: PT-BEH-2019110146

PATIENT
  Age: 87 Year
  Sex: Female

DRUGS (1)
  1. HUMAN IMMUNOGLOBULIN (INN) [Suspect]
     Active Substance: HUMAN IMMUNOGLOBULIN G
     Indication: GUILLAIN-BARRE SYNDROME
     Dosage: 0.4 GRAM PER KILOGRAM, QD
     Route: 042

REACTIONS (2)
  - Coombs direct test positive [Unknown]
  - Coombs positive haemolytic anaemia [Unknown]
